FAERS Safety Report 8962689 (Version 3)
Quarter: 2013Q2

REPORT INFORMATION
  Report Type: Spontaneous
  Country: JP (occurrence: JP)
  Receive Date: 20121214
  Receipt Date: 20130604
  Transmission Date: 20140414
  Serious: Yes (Other)
  Sender: FDA-Public Use
  Company Number: JP-UCBSA-072896

PATIENT
  Age: 24 Year
  Sex: Female
  Weight: 44.7 kg

DRUGS (5)
  1. E KEPPRA [Suspect]
     Indication: EPILEPSY
     Dosage: CRUSHED VIA TUBE
     Route: 048
     Dates: start: 20121013, end: 20121110
  2. DEPAKENE [Concomitant]
     Indication: EPILEPSY
     Dosage: DAILY DOSE: 16 ML
     Route: 048
     Dates: start: 20120502
  3. LIORESAL [Concomitant]
     Indication: MUSCLE RELAXANT THERAPY
     Dosage: DAILY DOSE: 30 MG
     Route: 048
     Dates: start: 20120502
  4. SYMMETREL [Concomitant]
     Indication: ABULIA
     Dosage: DOSE: 100 MG
     Route: 048
     Dates: start: 20120502
  5. TAKEPRON [Concomitant]
     Indication: ULCER
     Dosage: DAILY DOSE: 15 MG
     Route: 048
     Dates: start: 20120502

REACTIONS (2)
  - Rash [Recovered/Resolved]
  - Off label use [Unknown]
